FAERS Safety Report 14034598 (Version 3)
Quarter: 2017Q4

REPORT INFORMATION
  Report Type: Report from Study
  Country: DE (occurrence: DE)
  Receive Date: 20171003
  Receipt Date: 20171124
  Transmission Date: 20180321
  Serious: Yes (Hospitalization)
  Sender: FDA-Public Use
  Company Number: DE-ASTELLAS-2017US039173

PATIENT
  Age: 65 Year
  Sex: Female

DRUGS (38)
  1. VOMEX A [Concomitant]
     Active Substance: DIMENHYDRINATE
     Indication: NAUSEA
     Dosage: 1 DF (1 COATED TABLET), AS NEEDED
     Route: 048
     Dates: end: 201709
  2. EPHEDRIN [Concomitant]
     Active Substance: EPHEDRINE HYDROCHLORIDE
     Indication: PERIPHERAL VASCULAR DISORDER
     Route: 042
     Dates: start: 20170906
  3. ARTERENOL [Concomitant]
     Active Substance: NOREPINEPHRINE HYDROCHLORIDE, (+/-)-
     Indication: PERIPHERAL VASCULAR DISORDER
     Dosage: 0.02 MG/ML, AS NEEDED
     Route: 042
     Dates: start: 20170906, end: 20170911
  4. RESONIUM [Concomitant]
     Active Substance: SODIUM POLYSTYRENE SULFONATE
     Indication: HYPERKALAEMIA
     Dosage: 2 MEASURING BEAKERS, AS NEEDED
     Route: 048
     Dates: start: 20170906, end: 20170907
  5. PRAVASTATIN. [Concomitant]
     Active Substance: PRAVASTATIN
     Indication: PROPHYLAXIS
     Route: 048
     Dates: start: 20170909
  6. CALCIUMACETAT NEFRO [Concomitant]
     Indication: HYPERPHOSPHATAEMIA
     Route: 048
     Dates: end: 20170905
  7. PREGABALIN. [Concomitant]
     Active Substance: PREGABALIN
     Indication: POLYNEUROPATHY
     Route: 048
     Dates: start: 20170905
  8. COUMADIN [Concomitant]
     Active Substance: WARFARIN SODIUM
     Indication: SHUNT OCCLUSION
     Dosage: UNK UNK, UNKNOWN FREQ.
     Route: 065
  9. INSULIN [Concomitant]
     Active Substance: INSULIN NOS
     Indication: HYPERKALAEMIA
     Route: 042
     Dates: start: 20170906
  10. PANTOZOL [Concomitant]
     Active Substance: PANTOPRAZOLE SODIUM
     Indication: PROPHYLAXIS
     Route: 048
     Dates: start: 20170906
  11. RENAGEL [Concomitant]
     Active Substance: SEVELAMER HYDROCHLORIDE
     Indication: HYPERPHOSPHATAEMIA
     Route: 048
     Dates: start: 20170909
  12. FERRLECIT                          /00023541/ [Concomitant]
     Indication: IRON DEFICIENCY ANAEMIA
     Route: 042
     Dates: start: 20170911
  13. NYSTATIN. [Concomitant]
     Active Substance: NYSTATIN
     Indication: PROPHYLAXIS
     Route: 048
     Dates: start: 20170908
  14. METRONIDAZOL                       /00012501/ [Concomitant]
     Active Substance: METRONIDAZOLE
     Indication: INFECTION PROPHYLAXIS
     Route: 042
     Dates: start: 20170906
  15. BERIPLEX HS [Concomitant]
     Active Substance: COAGULATION FACTOR IX HUMAN\COAGULATION FACTOR VII HUMAN\COAGULATION FACTOR X HUMAN\PROTEIN C\PROTEIN S HUMAN\PROTHROMBIN
     Indication: HAEMORRHAGE PROPHYLAXIS
     Dosage: 3000 IE, UNKNOWN FREQ.
     Route: 042
     Dates: start: 20170906
  16. SULTANOL [Concomitant]
     Active Substance: ALBUTEROL SULFATE
     Indication: BRONCHIAL SECRETION RETENTION
     Dosage: 2 DF (2 PUFFS), UNKNOWN FREQ.
     Route: 048
     Dates: start: 20170906
  17. TOREM                              /01036501/ [Concomitant]
     Active Substance: TORSEMIDE
     Indication: FLUID OVERLOAD
     Route: 048
     Dates: start: 20170918
  18. CETIRIZIN [Concomitant]
     Active Substance: CETIRIZINE HYDROCHLORIDE
     Indication: PRURITUS
     Dosage: 2 DF (TABLETS), UNKNOWN FREQ.
     Route: 048
     Dates: start: 20170905, end: 20170912
  19. VIGANTOLETTEN [Concomitant]
     Active Substance: CHOLECALCIFEROL
     Indication: OSTEOPOROSIS PROPHYLAXIS
     Dosage: 1 DF (1 TABLET), UNKNOWN FREQ.
     Route: 048
     Dates: start: 20170910
  20. TACROLIMUS. [Suspect]
     Active Substance: TACROLIMUS
     Indication: RENAL TRANSPLANT
     Route: 048
     Dates: start: 20170906, end: 20170906
  21. OMEP                               /00661201/ [Concomitant]
     Active Substance: OMEPRAZOLE
     Indication: GASTRIC ULCER
     Route: 048
     Dates: end: 20170905
  22. NOVALGIN [Concomitant]
     Active Substance: METAMIZOLE SODIUM
     Indication: POLYNEUROPATHY
     Dosage: 20 DF (DROPLETS), AS NEEDED
     Route: 048
     Dates: end: 201709
  23. COUMADIN [Concomitant]
     Active Substance: WARFARIN SODIUM
     Indication: ATRIAL FIBRILLATION
     Route: 048
     Dates: end: 20170905
  24. EFFORTIL [Concomitant]
     Active Substance: ETILEFRINE HYDROCHLORIDE
     Route: 048
     Dates: start: 20170912
  25. INSULIN [Concomitant]
     Active Substance: INSULIN NOS
     Route: 042
     Dates: start: 20170907
  26. DRIDASE [Concomitant]
     Indication: BLADDER PAIN
     Route: 048
     Dates: start: 20170909
  27. KEPINOL [Concomitant]
     Active Substance: SULFAMETHOXAZOLE\TRIMETHOPRIM
     Indication: ANTIFUNGAL PROPHYLAXIS
     Route: 048
     Dates: start: 20170908
  28. MAGNESIUM [Concomitant]
     Active Substance: MAGNESIUM
     Indication: PROPHYLAXIS
     Route: 048
     Dates: start: 20170907
  29. ARANESP [Concomitant]
     Active Substance: DARBEPOETIN ALFA
     Indication: ANAEMIA
     Route: 058
     Dates: start: 20170910
  30. HYDROMORPHONE [Concomitant]
     Active Substance: HYDROMORPHONE
     Indication: POLYNEUROPATHY
     Route: 048
     Dates: end: 20170905
  31. EFFORTIL [Concomitant]
     Active Substance: ETILEFRINE HYDROCHLORIDE
     Indication: HYPOTENSION
     Dosage: 10 DF (DROPLETS), AS NEEDED
     Route: 048
     Dates: start: 20170905
  32. KONAKION [Concomitant]
     Active Substance: PHYTONADIONE
     Indication: HAEMORRHAGE PROPHYLAXIS
     Dosage: 1 DF (1 AMPOULE), AT BEDTIME
     Route: 042
     Dates: start: 20170906
  33. LASIX [Concomitant]
     Active Substance: FUROSEMIDE
     Indication: FLUID OVERLOAD
     Route: 042
     Dates: start: 20170909, end: 20170910
  34. CYTOBION [Concomitant]
     Indication: ANAEMIA
     Dosage: 2 DF (AMPOULES), UNKNOWN FREQ.
     Route: 042
     Dates: start: 20170910
  35. BICANORM [Concomitant]
     Active Substance: SODIUM BICARBONATE
     Indication: METABOLIC ACIDOSIS
     Route: 048
     Dates: start: 20170920
  36. CEFUROXIM                          /00454602/ [Concomitant]
     Active Substance: CEFUROXIME
     Indication: INFECTION PROPHYLAXIS
     Route: 042
     Dates: start: 20170906
  37. NATRIUMBICARBONATE BRAUN [Concomitant]
     Indication: METABOLIC ACIDOSIS
     Route: 042
     Dates: start: 20170906
  38. VALCYTE [Concomitant]
     Active Substance: VALGANCICLOVIR HYDROCHLORIDE
     Indication: PROPHYLAXIS
     Route: 048
     Dates: start: 20170908

REACTIONS (1)
  - Histology abnormal [Recovered/Resolved]

NARRATIVE: CASE EVENT DATE: 20170920
